FAERS Safety Report 4513262-7 (Version None)
Quarter: 2004Q4

REPORT INFORMATION
  Report Type: 
  Country: None (occurrence: None)
  Receive Date: 20041130
  Receipt Date: 20041028
  Transmission Date: 20050328
  Serious: Yes (Hospitalization)
  Sender: FDA-Public Use
  Company Number: AU-ROCHE-384503

PATIENT
  Sex: Female

DRUGS (7)
  1. XENICAL [Suspect]
     Indication: DRUG USE FOR UNKNOWN INDICATION
     Route: 048
     Dates: start: 20041022
  2. FELODIPINE [Concomitant]
  3. DICLOFENAC [Concomitant]
  4. AVAPRO HCT [Concomitant]
     Dosage: STRENGTH: 300/12.5MG.
  5. PANAMAX [Concomitant]
  6. SYMBICORT [Concomitant]
  7. ASPIRIN [Concomitant]

REACTIONS (4)
  - ASTHENIA [None]
  - CHEST PAIN [None]
  - DYSSTASIA [None]
  - PALPITATIONS [None]
